FAERS Safety Report 10513441 (Version 3)
Quarter: 2015Q1

REPORT INFORMATION
  Report Type: Report from Study
  Country: AU (occurrence: AU)
  Receive Date: 20141013
  Receipt Date: 20150212
  Transmission Date: 20150720
  Serious: Yes (Other)
  Sender: FDA-Public Use
  Company Number: AU-ROCHE-1473424

PATIENT
  Sex: Female

DRUGS (1)
  1. ACTEMRA [Suspect]
     Active Substance: TOCILIZUMAB
     Indication: RHEUMATOID ARTHRITIS
     Dosage: DATE OF FIRST RECEIVED INFUSION: 28/SEP/2011 BUT IT WAS NOT KNOWN IF THE PATIENT RECEIVED TOCILIZUMA
     Route: 042

REACTIONS (2)
  - Atrial fibrillation [Recovered/Resolved with Sequelae]
  - Renal neoplasm [Not Recovered/Not Resolved]
